FAERS Safety Report 9474070 (Version 1)
Quarter: 2013Q3

REPORT INFORMATION
  Report Type: Spontaneous
  Country: US (occurrence: None)
  Receive Date: 20130820
  Receipt Date: 20130820
  Transmission Date: 20140515
  Serious: Yes (Hospitalization)
  Sender: FDA-Public Use
  Company Number: THQ2013A06153

PATIENT
  Age: 59 Year
  Sex: Male

DRUGS (7)
  1. PIOGLITAZONE (PIOGLITAZONE HYDROCHLORIDE)(TABLETS) [Suspect]
  2. LIXISENATIDE [Suspect]
     Indication: TYPE 2 DIABETES MELLITUS
     Dosage: 1D
     Route: 058
     Dates: start: 20110406, end: 20110419
  3. OPTICLICK (ALL OTHER THERAPEUTIC PRODUCTS) [Concomitant]
  4. INSULIN DETEMIR [Concomitant]
  5. LATANOPROST [Concomitant]
  6. ACETAMINOPHEN (PARACETAMOL) [Concomitant]
  7. PREDNISOLONE ACETATE [Concomitant]

REACTIONS (2)
  - Pancreatitis acute [None]
  - Cholecystitis acute [None]
